FAERS Safety Report 8523944 (Version 5)
Quarter: 2012Q4

REPORT INFORMATION
  Report Type: Report from Study
  Country: BR (occurrence: BR)
  Receive Date: 20120420
  Receipt Date: 20120830
  Transmission Date: 20130627
  Serious: Yes (Other)
  Sender: FDA-Public Use
  Company Number: BR-AMGEN-BRACT2012024395

PATIENT
  Age: 59 Year
  Sex: Male

DRUGS (8)
  1. DENOSUMAB [Suspect]
     Indication: PROSTATE CANCER
     Dosage: UNK UNK, qmo
     Route: 058
     Dates: start: 20080619, end: 20111011
  2. PREDNISONE [Concomitant]
     Indication: PROSTATE CANCER
     Dosage: 5 mg, bid
     Dates: start: 20100913, end: 20111030
  3. TAXOTERE [Concomitant]
     Indication: PROSTATE CANCER
     Dosage: 75 mg/m2, UNK
     Dates: start: 20100913, end: 20110202
  4. DESTILBENOL [Concomitant]
     Indication: PROSTATE CANCER
     Dosage: 3 mg, UNK
     Dates: start: 20091214, end: 20100908
  5. VITAMIN D [Concomitant]
     Dosage: UNK
     Route: 048
     Dates: start: 20080619, end: 20111011
  6. CALCIUM [Concomitant]
     Dosage: UNK
     Route: 048
     Dates: start: 20080619, end: 20111011
  7. CAPTOPRIL [Concomitant]
     Dosage: 25 mg, bid
     Route: 048
     Dates: start: 20080603
  8. DICLOFENAC [Concomitant]
     Dosage: 50 mg, bid
     Route: 048
     Dates: start: 20110413, end: 20110421

REACTIONS (1)
  - Exposed bone in jaw [Not Recovered/Not Resolved]
